FAERS Safety Report 4336063-1 (Version None)
Quarter: 2004Q2

REPORT INFORMATION
  Report Type: 
  Country: None (occurrence: None)
  Receive Date: 20040408
  Receipt Date: 20040323
  Transmission Date: 20050107
  Serious: Yes (Life-Threatening, Hospitalization)
  Sender: FDA-Public Use
  Company Number: ZONI001374

PATIENT
  Age: 34 Year
  Sex: Male

DRUGS (2)
  1. EXCEGRAN (ZONISAMIDE) [Suspect]
     Indication: CONVULSION
     Dosage: 400 MG DAILY ORAL
     Route: 048
     Dates: start: 20031020, end: 20040227
  2. NEUMETHYCOLE (MECOBALAMIN) [Concomitant]

REACTIONS (4)
  - APLASTIC ANAEMIA [None]
  - DIZZINESS [None]
  - MALAISE [None]
  - TONSILLITIS [None]
